FAERS Safety Report 17160415 (Version 2)
Quarter: 2019Q4

REPORT INFORMATION
  Report Type: Spontaneous
  Country: LV (occurrence: LV)
  Receive Date: 20191216
  Receipt Date: 20191220
  Transmission Date: 20200122
  Serious: Yes (Hospitalization, Other)
  Sender: FDA-Public Use
  Company Number: LV-PFIZER INC-2019536448

PATIENT
  Age: 40 Year
  Sex: Male

DRUGS (5)
  1. ITRACONAZOLE. [Concomitant]
     Active Substance: ITRACONAZOLE
     Indication: ANTIFUNGAL TREATMENT
     Dosage: UNK
  2. CYTARABINE. [Suspect]
     Active Substance: CYTARABINE
     Indication: ACUTE MYELOID LEUKAEMIA
     Dosage: UNK
  3. G-CSF [Suspect]
     Active Substance: GRANULOCYTE COLONY-STIMULATING FACTOR NOS
     Indication: ACUTE MYELOID LEUKAEMIA
     Dosage: UNK
  4. IDARUBICIN HCL [Suspect]
     Active Substance: IDARUBICIN HYDROCHLORIDE
     Indication: ACUTE MYELOID LEUKAEMIA
     Dosage: UNK
  5. FLUDARABINE PHOSPHATE. [Suspect]
     Active Substance: FLUDARABINE PHOSPHATE
     Indication: ACUTE MYELOID LEUKAEMIA
     Dosage: UNK

REACTIONS (9)
  - Actinomycotic pulmonary infection [Recovered/Resolved]
  - Splenic infection fungal [Recovered/Resolved]
  - Abdominal pain upper [Recovered/Resolved]
  - Jaundice [Recovered/Resolved]
  - Hepatitis B reactivation [Recovered/Resolved]
  - Haemoptysis [Recovered/Resolved]
  - Pneumonia klebsiella [Recovered/Resolved]
  - Bronchopulmonary aspergillosis [Recovered/Resolved]
  - Productive cough [Recovered/Resolved]
